FAERS Safety Report 10608268 (Version 2)
Quarter: 2015Q1

REPORT INFORMATION
  Report Type: Spontaneous
  Country: US (occurrence: US)
  Receive Date: 20141125
  Receipt Date: 20150129
  Transmission Date: 20150720
  Serious: Yes (Other)
  Sender: FDA-Public Use
  Company Number: US-ASTELLAS-2014US018155

PATIENT
  Age: 43 Year
  Sex: Male

DRUGS (1)
  1. PROGRAF [Suspect]
     Active Substance: TACROLIMUS\TACROLIMUS ANHYDROUS
     Indication: TRANSPLANT REJECTION
     Dosage: 2 MG IN AM AND 1 MG IN PM
     Route: 048
     Dates: start: 20040118

REACTIONS (5)
  - Synovial cyst [Unknown]
  - Vision blurred [Not Recovered/Not Resolved]
  - Incisional hernia [Not Recovered/Not Resolved]
  - Unevaluable event [Unknown]
  - Neuropathy peripheral [Unknown]

NARRATIVE: CASE EVENT DATE: 200401
